FAERS Safety Report 5472776-6 (Version None)
Quarter: 2007Q4

REPORT INFORMATION
  Report Type: 
  Country: None (occurrence: None)
  Receive Date: 20071001
  Receipt Date: 20061030
  Transmission Date: 20080405
  Serious: No
  Sender: FDA-Public Use
  Company Number: US-ASTRAZENECA-2006UW20761

PATIENT
  Age: 78 Year
  Sex: Female
  Weight: 54.4 kg

DRUGS (3)
  1. ARIMIDEX [Suspect]
     Indication: BREAST CANCER FEMALE
     Route: 048
     Dates: start: 20060101
  2. TOPROL-XL [Concomitant]
     Route: 048
  3. PREVACID [Concomitant]

REACTIONS (2)
  - ARTHRALGIA [None]
  - PHARYNGOLARYNGEAL PAIN [None]
